FAERS Safety Report 10420759 (Version 1)
Quarter: 2014Q1

REPORT INFORMATION
  Report Type: Spontaneous
  Country: US (occurrence: None)
  Receive Date: 20130924
  Receipt Date: 20130924
  Transmission Date: 20141002
  Serious: No
  Sender: FDA-Public Use
  Company Number: 2013000252S

PATIENT
  Age: 65 Year
  Sex: Female
  Weight: 65.77 kg

DRUGS (3)
  1. OSPHENA (OSPEMIFENE) TABLET [Suspect]
     Indication: DYSPAREUNIA
     Route: 048
     Dates: start: 20130807, end: 20130812
  2. PRILOSEC (OMEPRAZOLE) [Concomitant]
  3. ACYCLOVIR [Concomitant]

REACTIONS (2)
  - Nightmare [None]
  - Diarrhoea [None]
